FAERS Safety Report 9855190 (Version 1)
Quarter: 2014Q1

REPORT INFORMATION
  Report Type: Spontaneous
  Country: JP (occurrence: None)
  Receive Date: 20140127
  Receipt Date: 20140127
  Transmission Date: 20141002
  Serious: Yes (Other)
  Sender: FDA-Public Use
  Company Number: 2014JP00043

PATIENT
  Age: 53 Year
  Sex: Male

DRUGS (5)
  1. GEMCITABINE (GEMCITABINE) INJECTION [Suspect]
     Indication: BLADDER CANCER
  2. VINBLASTINE [Concomitant]
  3. DOXORUBICIN [Concomitant]
  4. CISPLATIN [Concomitant]
  5. METHOTREXATE [Concomitant]

REACTIONS (1)
  - Portal vein thrombosis [None]
